FAERS Safety Report 16036524 (Version 1)
Quarter: 2019Q1

REPORT INFORMATION
  Report Type: Spontaneous
  Country: US (occurrence: US)
  Receive Date: 20190305
  Receipt Date: 20190305
  Transmission Date: 20190418
  Serious: Yes (Hospitalization)
  Sender: FDA-Public Use
  Company Number: US-TEVA-2019-US-1018043

PATIENT
  Sex: Female

DRUGS (5)
  1. BABY ASPIRIN [Concomitant]
     Active Substance: ASPIRIN
  2. ALEVE [Concomitant]
     Active Substance: NAPROXEN SODIUM
     Dosage: SHE TAKES THIS SOMETIMES WHEN THE PAIN IS TO BAD
  3. AMLODIPINE BESYLATE ASCEND LABRATO [Suspect]
     Active Substance: AMLODIPINE BESYLATE
     Indication: BLOOD PRESSURE MEASUREMENT
     Dosage: 5MG IN THE EVENING
     Dates: start: 20180131
  4. LOSARTAN HCTZ ALEMBIC [Suspect]
     Active Substance: HYDROCHLOROTHIAZIDE\LOSARTAN
     Indication: BLOOD PRESSURE MEASUREMENT
     Dosage: 100MG/25MG IN THE MORNING
     Route: 065
  5. SIMVASTATIN TEVA [Suspect]
     Active Substance: SIMVASTATIN
     Indication: BLOOD CHOLESTEROL
     Dates: end: 20180131

REACTIONS (2)
  - Fall [Unknown]
  - Contraindicated product administered [Unknown]
